FAERS Safety Report 18462574 (Version 2)
Quarter: 2022Q3

REPORT INFORMATION
  Report Type: Spontaneous
  Country: CA (occurrence: CA)
  Receive Date: 20201104
  Receipt Date: 20220711
  Transmission Date: 20221026
  Serious: Yes (Hospitalization, Other)
  Sender: FDA-Public Use
  Company Number: CA-GLAXOSMITHKLINE-CA2020GSK219224

PATIENT

DRUGS (2)
  1. AVANDIA [Suspect]
     Active Substance: ROSIGLITAZONE MALEATE
     Indication: Diabetes mellitus
     Dosage: UNK, QD
     Route: 048
     Dates: start: 20080429, end: 20110211
  2. AVANDAMET [Suspect]
     Active Substance: METFORMIN HYDROCHLORIDE\ROSIGLITAZONE MALEATE
     Indication: Diabetes mellitus
     Dosage: 1 DF, BID
     Route: 048
     Dates: start: 20080429, end: 20110511

REACTIONS (5)
  - Acute coronary syndrome [Unknown]
  - Acute myocardial infarction [Unknown]
  - Myocardial infarction [Unknown]
  - Coronary arterial stent insertion [Unknown]
  - Cardiac disorder [Unknown]
